FAERS Safety Report 24229975 (Version 4)
Quarter: 2024Q3

REPORT INFORMATION
  Report Type: Spontaneous
  Country: US (occurrence: US)
  Receive Date: 20240820
  Receipt Date: 20240924
  Transmission Date: 20241016
  Serious: Yes (Other)
  Sender: MERCK
  Company Number: US-009507513-2408USA004764

PATIENT
  Sex: Female

DRUGS (2)
  1. MOLNUPIRAVIR [Suspect]
     Active Substance: MOLNUPIRAVIR
     Dosage: 1 PILL, ON THE FIRST NIGHT
     Route: 048
  2. MOLNUPIRAVIR [Suspect]
     Active Substance: MOLNUPIRAVIR
     Dosage: UNSPECIFIED DOSE (REPORTED AS CORRECT NUMBER OF PILLS)
     Route: 048

REACTIONS (5)
  - Diabetes mellitus [Unknown]
  - Immunodeficiency [Unknown]
  - COVID-19 [Recovering/Resolving]
  - Product label issue [Unknown]
  - Incorrect dose administered [Unknown]
